FAERS Safety Report 5761155-X (Version None)
Quarter: 2008Q2

REPORT INFORMATION
  Report Type: 
  Country: None (occurrence: None)
  Receive Date: 20080606
  Receipt Date: 20080527
  Transmission Date: 20081010
  Serious: Yes (Other)
  Sender: FDA-Public Use
  Company Number: B0376816A

PATIENT
  Age: 30 Year
  Sex: Female

DRUGS (9)
  1. PAROXETINE HCL [Suspect]
     Indication: ANXIETY
     Dates: start: 19950516
  2. DIAZEPAM [Concomitant]
     Dates: start: 19911109
  3. LUSTRAL [Concomitant]
     Dates: start: 19950930
  4. CITALOPRAM HYDROBROMIDE [Concomitant]
     Dates: start: 20010302
  5. PROZAC [Concomitant]
     Dates: start: 20010425
  6. NEFAZODONE HCL [Concomitant]
     Dates: start: 19950523, end: 19950530
  7. DOTHIEPIN HYDROCHLORIDE [Concomitant]
     Dates: start: 19950530, end: 19951001
  8. SERTRALINE [Concomitant]
     Dates: start: 19951001, end: 19970220
  9. GAMOLENIC ACID [Concomitant]

REACTIONS (15)
  - ADVERSE DRUG REACTION [None]
  - BALANCE DISORDER [None]
  - CHILLS [None]
  - DISTURBANCE IN ATTENTION [None]
  - DIZZINESS [None]
  - DRUG DEPENDENCE [None]
  - DRUG WITHDRAWAL SYNDROME [None]
  - HEADACHE [None]
  - HOT FLUSH [None]
  - NAUSEA [None]
  - NECK PAIN [None]
  - PAIN IN EXTREMITY [None]
  - SEROTONIN SYNDROME [None]
  - SUICIDAL BEHAVIOUR [None]
  - THINKING ABNORMAL [None]
